FAERS Safety Report 15855341 (Version 6)
Quarter: 2019Q2

REPORT INFORMATION
  Report Type: Spontaneous
  Country: TW (occurrence: TW)
  Receive Date: 20190122
  Receipt Date: 20190426
  Transmission Date: 20190711
  Serious: Yes (Death, Hospitalization, Other)
  Sender: FDA-Public Use
  Company Number: TW-GILEAD-2019-0386043

PATIENT
  Age: 60 Year
  Sex: Male

DRUGS (5)
  1. HARVONI [Suspect]
     Active Substance: LEDIPASVIR\SOFOSBUVIR
     Indication: CHRONIC HEPATITIS C
     Dosage: UNK
     Route: 065
     Dates: start: 20190109
  2. PARIET [Concomitant]
     Active Substance: RABEPRAZOLE SODIUM
  3. BETALOC ZOK [Concomitant]
     Active Substance: METOPROLOL SUCCINATE
  4. RIBAVIRIN. [Suspect]
     Active Substance: RIBAVIRIN
     Indication: CHRONIC HEPATITIS C
     Dosage: UNK
     Route: 065
     Dates: start: 20190109
  5. FYLIN RETARD [Concomitant]

REACTIONS (6)
  - Acute kidney injury [Unknown]
  - Sepsis [Fatal]
  - Hepatic encephalopathy [Fatal]
  - Urinary tract infection [Unknown]
  - Hepatic failure [Unknown]
  - Altered state of consciousness [Unknown]
